FAERS Safety Report 19701815 (Version 11)
Quarter: 2022Q1

REPORT INFORMATION
  Report Type: Report from Study
  Country: CN (occurrence: None)
  Receive Date: 20210813
  Receipt Date: 20220307
  Transmission Date: 20220424
  Serious: Yes (Hospitalization)
  Sender: FDA-Public Use
  Company Number: CN-ROCHE-2888010

PATIENT
  Age: 49 Year
  Sex: Male
  Weight: 76 kg

DRUGS (28)
  1. ATEZOLIZUMAB [Suspect]
     Active Substance: ATEZOLIZUMAB
     Indication: Non-small cell lung cancer stage IV
     Route: 041
     Dates: start: 20210723
  2. CARBOPLATIN [Suspect]
     Active Substance: CARBOPLATIN
     Indication: Non-small cell lung cancer stage IV
     Dosage: ON 23/JUL/2021, HE RECEIVED MOST RECENT DOSE OF INTRAVENOUS CARBOPLATIN INFUSION(670 MG) PRIOR TO AE
     Route: 042
     Dates: start: 20210723
  3. PEMETREXED [Suspect]
     Active Substance: PEMETREXED
     Indication: Non-small cell lung cancer stage IV
     Dosage: ON 23/JUL/2021, HE RECEIVED MOST RECENT DOSE OF INTRAVENOUS PEMETREXED INFUSION(915 MG) PRIOR TO AE
     Route: 042
     Dates: start: 20210723
  4. BEVACIZUMAB [Suspect]
     Active Substance: BEVACIZUMAB
     Indication: Non-small cell lung cancer stage IV
     Dosage: ON 23/JUL/2021, THE PATIENT RECEIVED THE MOST RECENT DOSE (1140 MG).
     Route: 042
     Dates: start: 20210723
  5. OSIMERTINIB [Concomitant]
     Active Substance: OSIMERTINIB
     Dates: start: 20201130, end: 20210709
  6. DEXAMETHASONE [Concomitant]
     Active Substance: DEXAMETHASONE
     Indication: Prophylaxis
     Dates: start: 20210722, end: 20210724
  7. DEXAMETHASONE [Concomitant]
     Active Substance: DEXAMETHASONE
     Dates: start: 20210809, end: 20210825
  8. MINERALS\VITAMINS [Concomitant]
     Active Substance: MINERALS\VITAMINS
     Indication: Prophylaxis
     Dates: start: 20210712
  9. TROPISETRON HYDROCHLORIDE [Concomitant]
     Active Substance: TROPISETRON HYDROCHLORIDE
     Indication: Prophylaxis of nausea and vomiting
     Dates: start: 20210723, end: 20210725
  10. TROPISETRON HYDROCHLORIDE [Concomitant]
     Active Substance: TROPISETRON HYDROCHLORIDE
     Indication: Prophylaxis of nausea and vomiting
  11. VITAMIN B6 [Concomitant]
     Active Substance: PYRIDOXINE HYDROCHLORIDE
     Indication: Prophylaxis of nausea and vomiting
     Dates: start: 20210723, end: 20210727
  12. DEXAMETHASONE SODIUM PHOSPHATE [Concomitant]
     Active Substance: DEXAMETHASONE SODIUM PHOSPHATE
     Route: 042
     Dates: start: 20210809, end: 20210825
  13. DEXAMETHASONE SODIUM PHOSPHATE [Concomitant]
     Active Substance: DEXAMETHASONE SODIUM PHOSPHATE
     Route: 042
     Dates: start: 20210819, end: 20210822
  14. DEXAMETHASONE SODIUM PHOSPHATE [Concomitant]
     Active Substance: DEXAMETHASONE SODIUM PHOSPHATE
     Route: 042
     Dates: start: 20210823, end: 20210825
  15. HUMAN GRANULOCYTE STIMULATING FACTOR (UNK INGREDIENTS) [Concomitant]
     Indication: Prophylaxis
     Dosage: LITERS OF BLOOD TREATMENT
     Dates: start: 20210809, end: 20210809
  16. HUMAN GRANULOCYTE STIMULATING FACTOR (UNK INGREDIENTS) [Concomitant]
     Dates: start: 20210809, end: 20210810
  17. CALCIUM GLUCONATE [Concomitant]
     Active Substance: CALCIUM GLUCONATE
     Dates: start: 20210809, end: 20210825
  18. VITAMIN C [Concomitant]
     Active Substance: ASCORBIC ACID
     Dates: start: 20210709, end: 20210825
  19. HERBALS [Concomitant]
     Active Substance: HERBALS
     Dates: start: 20210809, end: 20210816
  20. ETIMICIN SULFATE [Concomitant]
     Active Substance: ETIMICIN SULFATE
     Dates: start: 20210809, end: 20210825
  21. OMEPRAZOLE SODIUM [Concomitant]
     Active Substance: OMEPRAZOLE SODIUM
     Indication: Prophylaxis
     Dates: start: 20210809, end: 20210825
  22. ITRACONAZOLE [Concomitant]
     Active Substance: ITRACONAZOLE
     Dates: start: 20210809, end: 20210825
  23. RECOMBINANT HUMAN GRANULOCYTE STIMULATING FACTOR (UNK INGREDIENTS) [Concomitant]
     Dates: start: 20210825, end: 20210825
  24. VITAMIN B12 [Concomitant]
     Active Substance: CYANOCOBALAMIN
     Indication: Prophylaxis
     Dates: start: 20210723, end: 20210723
  25. GLYCYRRHIZIN [Concomitant]
     Active Substance: GLYCYRRHIZIN
     Indication: Prophylaxis
     Dates: start: 20210816, end: 20210825
  26. COMPOUND BETAMETHASONE [Concomitant]
     Indication: Prophylaxis
     Dates: start: 20210810, end: 20210825
  27. TOBRAMYCIN [Concomitant]
     Active Substance: TOBRAMYCIN
     Dates: start: 20210810, end: 20210825
  28. COMPOUND PHELLODENDRON LIQUID COLD AND HOT WET COMPRESS WOUND DRESSING [Concomitant]
     Dates: start: 20210809, end: 20210825

REACTIONS (1)
  - Rash pustular [Recovered/Resolved]

NARRATIVE: CASE EVENT DATE: 20210807
